FAERS Safety Report 15419586 (Version 2)
Quarter: 2018Q4

REPORT INFORMATION
  Report Type: Spontaneous
  Country: GR (occurrence: GR)
  Receive Date: 20180924
  Receipt Date: 20181018
  Transmission Date: 20190204
  Serious: No
  Sender: FDA-Public Use
  Company Number: GR-PFIZER INC-2018378483

PATIENT
  Age: 73 Year
  Sex: Female

DRUGS (4)
  1. OXALIPLATIN. [Suspect]
     Active Substance: OXALIPLATIN
     Indication: INSULINOMA
     Dosage: UNK
  2. 5-FLUOROURACIL [FLUOROURACIL SODIUM] [Suspect]
     Active Substance: FLUOROURACIL SODIUM
     Indication: INSULINOMA
     Dosage: UNK
  3. EVEROLIMUS. [Concomitant]
     Active Substance: EVEROLIMUS
     Dosage: 10 MG, QD
  4. DIAZOXIDE [Suspect]
     Active Substance: DIAZOXIDE
     Indication: INSULINOMA
     Dosage: UNK

REACTIONS (1)
  - Product use in unapproved indication [Unknown]
